FAERS Safety Report 25319176 (Version 2)
Quarter: 2025Q3

REPORT INFORMATION
  Report Type: Spontaneous
  Country: LY (occurrence: LY)
  Receive Date: 20250515
  Receipt Date: 20250707
  Transmission Date: 20251020
  Serious: Yes (Death, Hospitalization, Other)
  Sender: SANOFI AVENTIS
  Company Number: LY-SA-2025SA139689

PATIENT
  Age: 17 Year
  Sex: Female

DRUGS (3)
  1. CEREZYME [Suspect]
     Active Substance: IMIGLUCERASE
     Indication: Gaucher^s disease
     Route: 065
  2. LEVETIRACETAM [Concomitant]
     Active Substance: LEVETIRACETAM
     Indication: Seizure
  3. VALPROATE SODIUM [Concomitant]
     Active Substance: VALPROATE SODIUM
     Indication: Seizure

REACTIONS (10)
  - Epilepsy [Fatal]
  - Bacteraemia [Fatal]
  - Multiple organ dysfunction syndrome [Fatal]
  - Renal failure [Fatal]
  - Coma [Fatal]
  - Hepatic failure [Fatal]
  - Pancytopenia [Fatal]
  - Aggression [Fatal]
  - Decreased appetite [Fatal]
  - Food refusal [Fatal]

NARRATIVE: CASE EVENT DATE: 20200801
